FAERS Safety Report 16028873 (Version 1)
Quarter: 2019Q1

REPORT INFORMATION
  Report Type: Spontaneous
  Country: US (occurrence: US)
  Receive Date: 20190304
  Receipt Date: 20190304
  Transmission Date: 20190418
  Serious: No
  Sender: FDA-Public Use
  Company Number: US-IMPAX LABORATORIES, LLC-2018-IPXL-01130

PATIENT
  Age: 71 Year
  Sex: Female
  Weight: 69 kg

DRUGS (5)
  1. PRAVASTATIN. [Concomitant]
     Active Substance: PRAVASTATIN
     Indication: HYPERCHOLESTEROLAEMIA
     Dosage: 1.5 TABLET, ONCE A DAY
     Route: 048
  2. RYTARY [Suspect]
     Active Substance: CARBIDOPA\LEVODOPA
     Indication: PARKINSON^S DISEASE
     Dosage: 48.75/195 MG 3 CAPSULES, ONCE DAILY
     Route: 065
     Dates: start: 2018, end: 2018
  3. SOTALOL. [Concomitant]
     Active Substance: SOTALOL
     Indication: ATRIAL FIBRILLATION
     Dosage: 1 TABLET, TWO TIMES A DAY
     Route: 048
  4. RYTARY [Suspect]
     Active Substance: CARBIDOPA\LEVODOPA
     Dosage: 48.75/195 MG, 3 CAPSULES THREE TIMES A DAY
     Route: 065
     Dates: start: 20180328, end: 2018
  5. XARELTO [Concomitant]
     Active Substance: RIVAROXABAN
     Indication: ATRIAL FIBRILLATION
     Dosage: 1 TABLET, ONCE A DAY
     Route: 048

REACTIONS (1)
  - Freezing phenomenon [Recovered/Resolved]

NARRATIVE: CASE EVENT DATE: 201803
